FAERS Safety Report 17561606 (Version 2)
Quarter: 2020Q3

REPORT INFORMATION
  Report Type: Report from Study
  Country: BR (occurrence: BR)
  Receive Date: 20200319
  Receipt Date: 20200805
  Transmission Date: 20201102
  Serious: Yes (Other)
  Sender: FDA-Public Use
  Company Number: BR-JNJFOC-20200314745

PATIENT
  Age: 48 Year
  Sex: Male
  Weight: 65 kg

DRUGS (3)
  1. REMICADE [Suspect]
     Active Substance: INFLIXIMAB
     Indication: CROHN^S DISEASE
     Route: 042
     Dates: start: 201902
  2. POLARAMINE [Suspect]
     Active Substance: DEXCHLORPHENIRAMINE MALEATE
     Route: 065
  3. BIO?MANGUINHOS INFLIXIMABE [Suspect]
     Active Substance: INFLIXIMAB
     Indication: CROHN^S DISEASE
     Dosage: 4 VIALS
     Route: 042
     Dates: start: 20190428

REACTIONS (12)
  - Retching [Recovered/Resolved]
  - Chest pain [Unknown]
  - Off label use [Unknown]
  - Chills [Unknown]
  - Infusion related reaction [Unknown]
  - Dyspnoea [Unknown]
  - Product use issue [Unknown]
  - Headache [Unknown]
  - Back pain [Unknown]
  - Feeling hot [Recovered/Resolved]
  - Crohn^s disease [Unknown]
  - Syncope [Unknown]

NARRATIVE: CASE EVENT DATE: 20190428
